FAERS Safety Report 6850966-5 (Version None)
Quarter: 2010Q3

REPORT INFORMATION
  Report Type: 
  Country: None (occurrence: None)
  Receive Date: 20100716
  Receipt Date: 20071127
  Transmission Date: 20110219
  Serious: No
  Sender: FDA-Public Use
  Company Number: US-PFIZER INC-2007090757

PATIENT
  Sex: Male
  Weight: 102.27 kg

DRUGS (2)
  1. CHANTIX [Suspect]
     Dates: start: 20070901, end: 20071001
  2. LOTREL [Concomitant]

REACTIONS (1)
  - NAUSEA [None]
